FAERS Safety Report 4342356-4 (Version None)
Quarter: 2004Q2

REPORT INFORMATION
  Report Type: 
  Country: None (occurrence: None)
  Receive Date: 20040416
  Receipt Date: 20040323
  Transmission Date: 20050107
  Serious: Yes (Hospitalization)
  Sender: FDA-Public Use
  Company Number: DL2004055

PATIENT
  Age: 29 Year
  Sex: Female

DRUGS (2)
  1. MIFEPRISTONE TABLETS, 200 MG (DANCO LABS) [Suspect]
     Indication: ABORTION INDUCED
     Dosage: 200 MG, ORAL
     Route: 048
     Dates: start: 20040309
  2. MISOPROSTOL [Suspect]
     Dosage: 800  MCG, VAGINAL
     Route: 067
     Dates: start: 20040310

REACTIONS (7)
  - COMPLICATIONS OF MATERNAL EXPOSURE TO THERAPEUTIC DRUGS [None]
  - DISSEMINATED INTRAVASCULAR COAGULATION [None]
  - ECTOPIC PREGNANCY [None]
  - HAEMORRHAGE [None]
  - MATERNAL DRUGS AFFECTING FOETUS [None]
  - NAUSEA [None]
  - THROMBOSIS [None]
